FAERS Safety Report 16148053 (Version 4)
Quarter: 2019Q3

REPORT INFORMATION
  Report Type: Report from Study
  Country: None (occurrence: US)
  Receive Date: 20190402
  Receipt Date: 20190816
  Transmission Date: 20191004
  Serious: Yes (Hospitalization, Other)
  Sender: FDA-Public Use
  Company Number: US-ABBVIE-19K-163-2687790-00

PATIENT
  Age: 72 Year
  Sex: Female
  Weight: 65.83 kg

DRUGS (2)
  1. PREDNISONE. [Concomitant]
     Active Substance: PREDNISONE
     Indication: PRODUCT USED FOR UNKNOWN INDICATION
  2. HUMIRA [Suspect]
     Active Substance: ADALIMUMAB
     Indication: CROHN^S DISEASE
     Route: 058
     Dates: start: 1994

REACTIONS (19)
  - Cough [Not Recovered/Not Resolved]
  - Dysgraphia [Not Recovered/Not Resolved]
  - Feeding disorder [Recovering/Resolving]
  - Haematochezia [Unknown]
  - Hypoacusis [Not Recovered/Not Resolved]
  - Diarrhoea [Unknown]
  - Crohn^s disease [Recovered/Resolved]
  - Blood pressure increased [Unknown]
  - Dyspnoea [Not Recovered/Not Resolved]
  - Vein collapse [Unknown]
  - General physical health deterioration [Recovering/Resolving]
  - Cerebrovascular accident [Recovering/Resolving]
  - Diverticulitis [Not Recovered/Not Resolved]
  - Polyp [Recovered/Resolved]
  - Cerebrovascular accident [Recovered/Resolved]
  - Spinal compression fracture [Recovering/Resolving]
  - Dysphonia [Not Recovered/Not Resolved]
  - Asthenia [Unknown]
  - Fall [Recovered/Resolved]

NARRATIVE: CASE EVENT DATE: 20120104
